FAERS Safety Report 8172833-X (Version None)
Quarter: 2012Q1

REPORT INFORMATION
  Report Type: 
  Country: None (occurrence: None)
  Receive Date: 20120104
  Receipt Date: 20111108
  Transmission Date: 20120608
  Serious: No
  Sender: FDA-Public Use
  Company Number: 2011HGS-002763

PATIENT
  Age: 37 Year
  Sex: Female
  Weight: 58.9676 kg

DRUGS (8)
  1. IMURAN [Concomitant]
  2. RESTASIS (CYCLOSPORINE) [Concomitant]
  3. BENLYSTA [Suspect]
     Indication: SYSTEMIC LUPUS ERYTHEMATOSUS
     Dosage: 10 MG/KG, 1 IN 28 D, INTRAVENOUS DRIP
     Route: 041
     Dates: start: 20111020
  4. PREDNISONE [Concomitant]
  5. FORTEO (TERIPARATIDE) (TERIPARATIDE) [Concomitant]
  6. IBUPROFEN TABLETS [Concomitant]
  7. TRAMADOL HCL [Concomitant]
  8. PLAQUENIL (HYDROXYCHLOROQUINE SULFATE) (HYDROXYCHLOROQUINE SULFATE) [Concomitant]

REACTIONS (5)
  - DRUG INEFFECTIVE [None]
  - JOINT SWELLING [None]
  - ARTHRALGIA [None]
  - SYNOVIAL CYST [None]
  - VULVOVAGINAL MYCOTIC INFECTION [None]
